FAERS Safety Report 7980454-4 (Version None)
Quarter: 2011Q4

REPORT INFORMATION
  Report Type: 
  Country: None (occurrence: None)
  Receive Date: 20111214
  Receipt Date: 20111209
  Transmission Date: 20120403
  Serious: Yes (Other)
  Sender: FDA-Public Use
  Company Number: US-GLAXOSMITHKLINE-A0945305A

PATIENT
  Age: 65 Year
  Sex: Female
  Weight: 64.5 kg

DRUGS (2)
  1. HORIZANT [Suspect]
     Route: 065
  2. NO CONCURRENT MEDICATION [Concomitant]

REACTIONS (2)
  - DIZZINESS [None]
  - SUICIDAL IDEATION [None]
